FAERS Safety Report 5480286-5 (Version None)
Quarter: 2007Q4

REPORT INFORMATION
  Report Type: 
  Country: None (occurrence: None)
  Receive Date: 20071003
  Receipt Date: 20070927
  Transmission Date: 20080405
  Serious: Yes (Hospitalization)
  Sender: FDA-Public Use
  Company Number: 15988

PATIENT
  Age: 68 Year
  Sex: Female

DRUGS (16)
  1. CYTARABINE [Suspect]
     Indication: ACUTE MYELOID LEUKAEMIA
     Dosage: 20 MG/M2 SC
     Route: 058
     Dates: start: 20070201, end: 20070201
  2. CYTARABINE [Suspect]
     Indication: ACUTE MYELOID LEUKAEMIA
     Dosage: 20 MG/M2 SC
     Route: 058
     Dates: start: 20070206
  3. AMPHOTERICIN B [Concomitant]
  4. ENDAMETHASONE [Concomitant]
  5. ERYTHROMYCIN [Concomitant]
  6. CEFOTAXIME SODIUM [Concomitant]
  7. BROMHEXINE [Concomitant]
  8. LASIX [Concomitant]
  9. VERAPAMIL [Concomitant]
  10. POTASSIUM CHLORIDE [Concomitant]
  11. AMITRIPTYLINE HCL [Concomitant]
  12. ENALAPRIL MALEATE [Concomitant]
  13. VEROSPIRON [Concomitant]
  14. DROTAVERINE HYDROCHLORIDE [Concomitant]
  15. THEOPHYLLINE [Concomitant]
  16. METOCLOPRAMIDE [Concomitant]

REACTIONS (5)
  - CARDIOMYOPATHY [None]
  - LEFT VENTRICULAR DYSFUNCTION [None]
  - NAUSEA [None]
  - PNEUMONIA [None]
  - TOXIC SHOCK SYNDROME [None]
